FAERS Safety Report 7065447-6 (Version None)
Quarter: 2010Q4

REPORT INFORMATION
  Report Type: 
  Country: None (occurrence: None)
  Receive Date: 20101027
  Receipt Date: 20101021
  Transmission Date: 20110411
  Serious: No
  Sender: FDA-Public Use
  Company Number: US-PFIZER INC-2010134893

PATIENT
  Sex: Female
  Weight: 22.4 kg

DRUGS (4)
  1. GENOTROPIN [Suspect]
     Indication: BODY HEIGHT BELOW NORMAL
     Dosage: 1 MG, DAILY
     Dates: start: 20100209
  2. LEUPRORELIN ACETATE [Concomitant]
     Indication: PRECOCIOUS PUBERTY
     Dosage: UNK
  3. TRILEPTAL [Concomitant]
     Dosage: UNK
  4. MYCELEX [Concomitant]
     Dosage: UNK

REACTIONS (3)
  - BLOOD FOLLICLE STIMULATING HORMONE INCREASED [None]
  - CONDITION AGGRAVATED [None]
  - TIC [None]
